FAERS Safety Report 5589211-X (Version None)
Quarter: 2008Q1

REPORT INFORMATION
  Report Type: 
  Country: None (occurrence: None)
  Receive Date: 20080114
  Receipt Date: 20080104
  Transmission Date: 20080703
  Serious: Yes (Hospitalization, Other)
  Sender: FDA-Public Use
  Company Number: PHFR2007GB02944

PATIENT
  Age: 52 Year
  Sex: Male

DRUGS (5)
  1. CLOZARIL [Suspect]
     Indication: SCHIZOPHRENIA
     Dosage: 850MG/DAY
     Route: 048
  2. CLOZARIL [Suspect]
     Dosage: 875 MG/DAY
     Route: 048
     Dates: start: 20030513
  3. VALPROATE SODIUM [Concomitant]
     Indication: EPILEPSY
     Dosage: 1.2 G/DAY
     Route: 048
  4. HYOSCINE HBR HYT [Concomitant]
     Indication: SALIVARY HYPERSECRETION
     Dosage: 600 MCG/DAY
     Route: 048
  5. ATORVASTATIN [Concomitant]
     Indication: HYPERCHOLESTEROLAEMIA
     Dosage: 20 MG/DAY
     Route: 048

REACTIONS (8)
  - EOSINOPHIL COUNT INCREASED [None]
  - EPILEPSY [None]
  - HODGKIN'S DISEASE [None]
  - HYPOCHOLESTEROLAEMIA [None]
  - NEUTROPHIL COUNT INCREASED [None]
  - PYREXIA [None]
  - SALIVARY HYPERSECRETION [None]
  - WHITE BLOOD CELL COUNT INCREASED [None]
